FAERS Safety Report 10802286 (Version 4)
Quarter: 2015Q2

REPORT INFORMATION
  Report Type: Spontaneous
  Country: US (occurrence: US)
  Receive Date: 20150217
  Receipt Date: 20150518
  Transmission Date: 20150821
  Serious: Yes (Hospitalization, Other)
  Sender: FDA-Public Use
  Company Number: US-PFIZER INC-2015059242

PATIENT
  Age: 54 Year
  Sex: Female
  Weight: 97.51 kg

DRUGS (16)
  1. VITAMIN D [Concomitant]
     Active Substance: CHOLECALCIFEROL
     Dosage: 50000 IU, WEEKLY
  2. WARFARIN [Concomitant]
     Active Substance: WARFARIN
     Dosage: 2.5 MG, 1X/DAY
     Route: 048
  3. MORPHINE SULPHATE [Concomitant]
     Active Substance: MORPHINE SULFATE
     Indication: PAIN
     Dosage: 30 MG, 2X/DAY ONE IN MORNING AND ONE AT NIGHT)
     Route: 048
  4. MORPHINE SULPHATE [Concomitant]
     Active Substance: MORPHINE SULFATE
     Dosage: 15 MG, 1X/DAY (AT NIGHT)
     Route: 048
  5. LEVOTHYROXINE [Concomitant]
     Active Substance: LEVOTHYROXINE
     Indication: THYROID DISORDER
     Dosage: 100 MG, 1X/DAY
     Route: 048
  6. FERROUS SULFATE [Concomitant]
     Active Substance: FERROUS SULFATE\FERROUS SULFATE, DRIED
     Indication: BLOOD IRON
     Dosage: 325 MG, 1X/DAY
     Route: 048
  7. VFEND [Suspect]
     Active Substance: VORICONAZOLE
     Indication: FUNGAL INFECTION
     Dosage: 200 MG, 2X/DAY
     Route: 048
     Dates: start: 20140201
  8. HYDROCORTISONE. [Concomitant]
     Active Substance: HYDROCORTISONE
     Indication: ADRENAL DISORDER
     Dosage: 40 MG, 2X/DAY (10 MG, 4 IN MORNING AND 4 AT 2 PM)
     Route: 048
  9. DILTIAZEM [Concomitant]
     Active Substance: DILTIAZEM
     Indication: CARDIAC DISORDER
     Dosage: 120 MG, 2X/DAY
     Route: 048
  10. OXYCODONE [Concomitant]
     Active Substance: OXYCODONE
     Indication: PAIN
     Dosage: 15 MG, EVERY 6 HOURS AS NEEDED
     Route: 048
  11. DULOXETINE [Concomitant]
     Active Substance: DULOXETINE
     Indication: NERVE INJURY
  12. DIAZEPAM. [Concomitant]
     Active Substance: DIAZEPAM
     Indication: MUSCLE SPASMS
     Dosage: 10 MG, EVERY 6 HOURS AS NEEDED
     Route: 048
  13. DULOXETINE [Concomitant]
     Active Substance: DULOXETINE
     Indication: PAIN
     Dosage: 60 MG, 1X/DAY (MORNING)
     Route: 048
  14. TRAZODONE [Concomitant]
     Active Substance: TRAZODONE HYDROCHLORIDE
     Indication: SLEEP DISORDER
     Dosage: 50 MG, 1X/DAY (AT NIGHT)
     Route: 048
  15. FLAGYL [Concomitant]
     Active Substance: METRONIDAZOLE\METRONIDAZOLE HYDROCHLORIDE
     Indication: CLOSTRIDIUM DIFFICILE COLITIS
     Dosage: 500 MG, 3X/DAY
     Route: 048
  16. OXYGEN. [Concomitant]
     Active Substance: OXYGEN
     Indication: DYSPNOEA
     Dosage: 2 L, MAINLY AT NIGHT

REACTIONS (20)
  - Adrenal insufficiency [Not Recovered/Not Resolved]
  - International normalised ratio increased [Unknown]
  - Thrombosis [Recovered/Resolved]
  - Kidney infection [Unknown]
  - Hip fracture [Unknown]
  - Thyroid function test abnormal [Unknown]
  - Immune system disorder [Unknown]
  - Cyst [Not Recovered/Not Resolved]
  - Pneumonia [Unknown]
  - Multiple fractures [Unknown]
  - Joint dislocation [Unknown]
  - Depressed level of consciousness [Recovered/Resolved]
  - Adrenocortical insufficiency acute [Not Recovered/Not Resolved]
  - Fall [Unknown]
  - Loss of consciousness [Not Recovered/Not Resolved]
  - Hypothalamo-pituitary disorder [Not Recovered/Not Resolved]
  - Arthritis infective [Unknown]
  - Cardiac disorder [Unknown]
  - Renal failure [Unknown]
  - Pain [Unknown]

NARRATIVE: CASE EVENT DATE: 201407
